APPROVED DRUG PRODUCT: MEDROXYPROGESTERONE ACETATE
Active Ingredient: MEDROXYPROGESTERONE ACETATE
Strength: 150MG/ML
Dosage Form/Route: INJECTABLE;INJECTION
Application: A214309 | Product #001
Applicant: HIKMA PHARMACEUTICALS USA INC
Approved: Jan 5, 2023 | RLD: No | RS: No | Type: DISCN